FAERS Safety Report 5777145-7 (Version None)
Quarter: 2008Q2

REPORT INFORMATION
  Report Type: 
  Country: None (occurrence: None)
  Receive Date: 20080618
  Receipt Date: 20080613
  Transmission Date: 20081010
  Serious: Yes (Hospitalization)
  Sender: FDA-Public Use
  Company Number: US-MERCK-0806USA01229

PATIENT
  Age: 50 Year
  Sex: Female

DRUGS (12)
  1. HYDRODIURIL [Suspect]
     Route: 048
  2. CELECOXIB [Suspect]
     Indication: ARTHRALGIA
     Route: 065
  3. LEVOTHYROXINE SODIUM [Concomitant]
     Route: 065
  4. ACETAMINOPHEN AND CODEINE [Concomitant]
     Route: 065
  5. ASPIRIN [Concomitant]
     Route: 065
  6. METFORMIN [Suspect]
     Route: 065
  7. ZOCOR [Concomitant]
     Route: 048
  8. OMEPRAZOLE [Concomitant]
     Route: 065
  9. PREGABALIN [Concomitant]
     Route: 065
  10. TIZANIDINE HYDROCHLORIDE [Concomitant]
     Route: 065
  11. CANDESARTAN [Suspect]
     Route: 065
  12. ARIPIPRAZOLE [Concomitant]
     Route: 065

REACTIONS (4)
  - DRUG INTERACTION [None]
  - LACTIC ACIDOSIS [None]
  - PANCREATITIS ACUTE [None]
  - RENAL FAILURE ACUTE [None]
